FAERS Safety Report 13648525 (Version 1)
Quarter: 2017Q2

REPORT INFORMATION
  Report Type: Spontaneous
  Country: JP (occurrence: JP)
  Receive Date: 20170613
  Receipt Date: 20170613
  Transmission Date: 20170830
  Serious: Yes (Death)
  Sender: FDA-Public Use
  Company Number: JP-MALLINCKRODT-T201702418

PATIENT
  Age: 35 Year
  Sex: Female
  Weight: 38 kg

DRUGS (16)
  1. OXYCONTIN [Concomitant]
     Active Substance: OXYCODONE HYDROCHLORIDE
     Indication: ANALGESIC THERAPY
     Dosage: 120 MG
     Route: 048
     Dates: end: 20140606
  2. FENTOS [Concomitant]
     Active Substance: FENTANYL
     Dosage: 12 MG
     Route: 062
     Dates: start: 20140603, end: 20140606
  3. DAIKENCHUTO [Concomitant]
     Active Substance: HERBALS
     Dosage: 7.5 G
     Route: 048
     Dates: end: 20140605
  4. FENTOS [Concomitant]
     Active Substance: FENTANYL
     Dosage: 6 MG
     Route: 062
     Dates: start: 20140527, end: 20140528
  5. FENTOS [Concomitant]
     Active Substance: FENTANYL
     Dosage: 10 MG
     Route: 062
     Dates: start: 20140529, end: 20140602
  6. METHADONE [Suspect]
     Active Substance: METHADONE HYDROCHLORIDE
     Indication: CANCER PAIN
     Dosage: 10 MG (30 MG DAILY DOSE)
     Route: 048
     Dates: start: 20140516, end: 20140605
  7. TS-1 [Concomitant]
     Active Substance: GIMERACIL\OTERACIL\TEGAFUR
     Dosage: 100 MG
     Route: 048
     Dates: end: 20140520
  8. DECADRON [Concomitant]
     Active Substance: DEXAMETHASONE
     Indication: ANALGESIC THERAPY
     Dosage: 1 MG
     Route: 048
     Dates: end: 20140605
  9. LENDORMIN [Concomitant]
     Active Substance: BROTIZOLAM
     Dosage: 0.5 MG
     Route: 048
     Dates: end: 20140605
  10. FENTOS [Concomitant]
     Active Substance: FENTANYL
     Dosage: 64 MG
     Route: 062
     Dates: start: 20140611, end: 20140612
  11. FENTOS [Concomitant]
     Active Substance: FENTANYL
     Indication: ANALGESIC THERAPY
     Dosage: 2 MG
     Route: 062
     Dates: end: 20140518
  12. OXINORM [Concomitant]
     Active Substance: OXYCODONE HYDROCHLORIDE
     Indication: ANALGESIC THERAPY
     Dosage: 20 MG, PRN
     Route: 048
     Dates: start: 20140610
  13. TAKEPRON [Concomitant]
     Active Substance: LANSOPRAZOLE
     Dosage: 30 MG
     Route: 048
     Dates: end: 20140605
  14. FENTOS [Concomitant]
     Active Substance: FENTANYL
     Dosage: 4 MG
     Route: 062
     Dates: start: 20140519, end: 20140526
  15. FENTOS [Concomitant]
     Active Substance: FENTANYL
     Dosage: 48 MG
     Route: 062
     Dates: start: 20140607, end: 20140608
  16. FENTOS [Concomitant]
     Active Substance: FENTANYL
     Dosage: 56 MG
     Route: 062
     Dates: start: 20140609, end: 20140610

REACTIONS (1)
  - Colon cancer [Fatal]

NARRATIVE: CASE EVENT DATE: 20140612
